FAERS Safety Report 5257615-0 (Version None)
Quarter: 2007Q1

REPORT INFORMATION
  Report Type: 
  Country: None (occurrence: None)
  Receive Date: 20070307
  Receipt Date: 20070105
  Transmission Date: 20070707
  Serious: No
  Sender: FDA-Public Use
  Company Number: US-GLAXOSMITHKLINE-A0634478A

PATIENT
  Age: 63 Year
  Sex: Female

DRUGS (9)
  1. REQUIP [Suspect]
     Indication: RESTLESS LEGS SYNDROME
     Dosage: .25MG THREE TIMES PER DAY
     Route: 048
  2. SYNTHROID [Concomitant]
  3. EVISTA [Concomitant]
  4. ZETIA [Concomitant]
  5. PAXIL CR [Concomitant]
  6. ASPIRIN [Concomitant]
  7. CITRACAL [Concomitant]
  8. GARLIC [Concomitant]
  9. SLEEPING PILL [Concomitant]

REACTIONS (2)
  - DRUG INEFFECTIVE [None]
  - ILL-DEFINED DISORDER [None]
